FAERS Safety Report 6826888-2 (Version None)
Quarter: 2010Q3

REPORT INFORMATION
  Report Type: 
  Country: None (occurrence: None)
  Receive Date: 20100709
  Receipt Date: 20100628
  Transmission Date: 20110219
  Serious: Yes (Hospitalization)
  Sender: FDA-Public Use
  Company Number: FR-ELI_LILLY_AND_COMPANY-FR201006007747

PATIENT
  Age: 85 Year
  Sex: Female

DRUGS (6)
  1. FORTEO [Suspect]
     Indication: OSTEOPOROSIS
     Dosage: 20 UG, DAILY (1/D)
     Dates: start: 20091002
  2. CARDENSIEL [Concomitant]
  3. PREVISCAN [Concomitant]
  4. DIFFU K [Concomitant]
  5. FUROSEMIDE [Concomitant]
  6. HEMIGOXINE [Concomitant]

REACTIONS (1)
  - BRADYCARDIA [None]
